FAERS Safety Report 10135890 (Version 2)
Quarter: 2014Q2

REPORT INFORMATION
  Report Type: Spontaneous
  Country: US (occurrence: US)
  Receive Date: 20140428
  Receipt Date: 20140428
  Transmission Date: 20141212
  Serious: Yes (Hospitalization, Other)
  Sender: FDA-Public Use
  Company Number: US-009507513-1105USA03646

PATIENT
  Age: 13 Year
  Sex: Female

DRUGS (1)
  1. ELAVIL [Suspect]
     Route: 048

REACTIONS (7)
  - Cardiac arrest [Recovered/Resolved]
  - Coma [Recovered/Resolved]
  - Overdose [Unknown]
  - Generalised tonic-clonic seizure [Recovered/Resolved]
  - Torsade de pointes [Recovered/Resolved]
  - Tachycardia [Recovered/Resolved]
  - Defect conduction intraventricular [Recovered/Resolved]
